FAERS Safety Report 7939507-9 (Version None)
Quarter: 2011Q4

REPORT INFORMATION
  Report Type: 
  Country: None (occurrence: None)
  Receive Date: 20111125
  Receipt Date: 20111115
  Transmission Date: 20120403
  Serious: Yes (Congenital Anomaly)
  Sender: FDA-Public Use
  Company Number: US-AMGEN-USASP2011046817

PATIENT

DRUGS (2)
  1. ENBREL [Suspect]
     Dosage: 50 MG, QWK
     Route: 064
     Dates: start: 20080421, end: 20101001
  2. ENBREL [Suspect]
     Dosage: 50 MG, QMO
     Route: 064
     Dates: start: 20030101

REACTIONS (1)
  - UMBILICAL CORD VASCULAR DISORDER [None]
